FAERS Safety Report 8067908-X (Version None)
Quarter: 2012Q1

REPORT INFORMATION
  Report Type: 
  Country: None (occurrence: None)
  Receive Date: 20120124
  Receipt Date: 20110909
  Transmission Date: 20120608
  Serious: No
  Sender: FDA-Public Use
  Company Number: US-AMGEN-USASP2011040591

PATIENT
  Age: 61 Year
  Sex: Female
  Weight: 62 kg

DRUGS (7)
  1. CALCIUM [Concomitant]
     Dosage: UNK
  2. DYAZIDE [Concomitant]
     Dosage: UNK
     Dates: start: 20090903
  3. VITAMIN D [Concomitant]
     Dosage: UNK
  4. ASTEPRO [Concomitant]
     Dosage: UNK
     Dates: start: 20090903
  5. PROLIA [Suspect]
     Indication: OSTEOPOROSIS POSTMENOPAUSAL
     Dosage: 60 MG, Q6MO
     Route: 058
     Dates: start: 20110623, end: 20110810
  6. BETAHISTINE [Concomitant]
     Dosage: UNK MG, UNK
     Dates: start: 20090903
  7. FOLIC ACID [Concomitant]
     Dosage: UNK
     Dates: start: 20070719

REACTIONS (2)
  - ONYCHOCLASIS [None]
  - IMPAIRED HEALING [None]
